FAERS Safety Report 23575453 (Version 5)
Quarter: 2024Q3

REPORT INFORMATION
  Report Type: Spontaneous
  Country: GB (occurrence: GB)
  Receive Date: 20240228
  Receipt Date: 20240802
  Transmission Date: 20241016
  Serious: Yes (Death, Other)
  Sender: AMGEN
  Company Number: GB-AMGEN-GBRSP2024037198

PATIENT
  Age: 57 Year
  Sex: Female

DRUGS (1)
  1. LUMAKRAS [Suspect]
     Active Substance: SOTORASIB
     Indication: Neoplasm malignant
     Dosage: 960 MILLIGRAM
     Route: 065

REACTIONS (3)
  - Malignant neoplasm progression [Fatal]
  - Optic neuritis [Recovering/Resolving]
  - Illness [Unknown]
